FAERS Safety Report 19462609 (Version 1)
Quarter: 2021Q2

REPORT INFORMATION
  Report Type: Spontaneous
  Country: FR (occurrence: FR)
  Receive Date: 20210625
  Receipt Date: 20210625
  Transmission Date: 20210717
  Serious: Yes (Other)
  Sender: FDA-Public Use
  Company Number: FR-ALLERGAN-2123798US

PATIENT
  Sex: Female

DRUGS (1)
  1. BOTOX [Suspect]
     Active Substance: ONABOTULINUMTOXINA
     Indication: TORTICOLLIS
     Dosage: 175 UNITS, SINGLE
     Route: 030
     Dates: start: 20170421, end: 20170421

REACTIONS (2)
  - Cyst [Recovered/Resolved]
  - Dropped head syndrome [Recovered/Resolved]

NARRATIVE: CASE EVENT DATE: 201704
